FAERS Safety Report 5371776-4 (Version None)
Quarter: 2007Q2

REPORT INFORMATION
  Report Type: 
  Country: None (occurrence: None)
  Receive Date: 20070625
  Receipt Date: 20070522
  Transmission Date: 20071010
  Serious: Yes (Hospitalization)
  Sender: FDA-Public Use
  Company Number: 2007BI013107

PATIENT
  Age: 82 Year
  Sex: Female

DRUGS (3)
  1. ZEVALIN [Suspect]
     Indication: B-CELL LYMPHOMA
     Dosage: 1X; IV
     Route: 042
     Dates: start: 20070301, end: 20070301
  2. ZEVALIN [Suspect]
     Indication: B-CELL LYMPHOMA
     Dosage: 1X; IV
     Route: 042
     Dates: start: 20070301, end: 20070301
  3. RITUXIMAB [Concomitant]

REACTIONS (8)
  - ABSCESS ORAL [None]
  - BLINDNESS [None]
  - BLOOD UREA ABNORMAL [None]
  - HEADACHE [None]
  - METASTATIC NEOPLASM [None]
  - OEDEMA PERIPHERAL [None]
  - PYREXIA [None]
  - WHITE BLOOD CELL COUNT DECREASED [None]
